FAERS Safety Report 4962239-6 (Version None)
Quarter: 2006Q2

REPORT INFORMATION
  Report Type: 
  Country: None (occurrence: None)
  Receive Date: 20060404
  Receipt Date: 20060329
  Transmission Date: 20061013
  Serious: Yes (Other)
  Sender: FDA-Public Use
  Company Number: PHNU2006DE01526

PATIENT
  Age: 70 Year
  Sex: Female
  Weight: 62 kg

DRUGS (1)
  1. DIOVAN [Suspect]
     Dosage: 80 MG, QD
     Route: 048
     Dates: start: 20051201

REACTIONS (5)
  - FAECES DISCOLOURED [None]
  - FLATULENCE [None]
  - GASTROINTESTINAL DISORDER [None]
  - PLEURAL EFFUSION [None]
  - WEIGHT INCREASED [None]
